FAERS Safety Report 17645930 (Version 8)
Quarter: 2020Q4

REPORT INFORMATION
  Report Type: Report from Study
  Country: US (occurrence: US)
  Receive Date: 20200408
  Receipt Date: 20201201
  Transmission Date: 20210113
  Serious: Yes (Other)
  Sender: FDA-Public Use
  Company Number: NVSC2020US092924

PATIENT
  Age: 29 Year
  Sex: Female
  Weight: 63.95 kg

DRUGS (2)
  1. ADAKVEO [Suspect]
     Active Substance: CRIZANLIZUMAB-TMCA
     Indication: SICKLE CELL DISEASE
     Dosage: 322 MG, UNKNOWN
     Route: 042
     Dates: start: 20200226
  2. ADAKVEO [Suspect]
     Active Substance: CRIZANLIZUMAB-TMCA
     Dosage: 332 MG, UNKNOWN
     Route: 042
     Dates: start: 20200626

REACTIONS (18)
  - Pain in extremity [Recovered/Resolved]
  - Gait disturbance [Unknown]
  - Chest pain [Recovered/Resolved]
  - Muscular weakness [Recovered/Resolved]
  - Pain in extremity [Recovered/Resolved]
  - Chest pain [Recovered/Resolved]
  - Pain [Unknown]
  - Stress [Unknown]
  - Pyrexia [Unknown]
  - COVID-19 [Unknown]
  - Hypoaesthesia [Recovered/Resolved]
  - Sickle cell anaemia with crisis [Unknown]
  - Pain in extremity [Recovered/Resolved]
  - Arthritis [Unknown]
  - Paraesthesia [Recovered/Resolved]
  - Pain in extremity [Unknown]
  - Chest pain [Recovered/Resolved]
  - Product dose omission issue [Unknown]

NARRATIVE: CASE EVENT DATE: 20200226
